FAERS Safety Report 9066146 (Version 1)
Quarter: 2013Q1

REPORT INFORMATION
  Report Type: Report from Study
  Country: US (occurrence: US)
  Receive Date: 20130131
  Receipt Date: 20130131
  Transmission Date: 20140127
  Serious: No
  Sender: FDA-Public Use
  Company Number: US-ABBOTT-12P-163-1016765-00

PATIENT
  Sex: Female

DRUGS (1)
  1. HUMIRA [Suspect]
     Indication: CROHN^S DISEASE
     Route: 058
     Dates: start: 201211

REACTIONS (5)
  - Fatigue [Unknown]
  - Injection site bruising [Unknown]
  - Constipation [Unknown]
  - Insomnia [Unknown]
  - Diarrhoea [Unknown]
